FAERS Safety Report 14228124 (Version 1)
Quarter: 2017Q4

REPORT INFORMATION
  Report Type: Spontaneous
  Country: US (occurrence: None)
  Receive Date: 20171127
  Receipt Date: 20171127
  Transmission Date: 20180321
  Serious: No
  Sender: FDA-Public Use
  Company Number: None

PATIENT
  Age: 89 Year
  Sex: Female
  Weight: 45.36 kg

DRUGS (5)
  1. LUTEIN [Concomitant]
     Active Substance: LUTEIN
  2. NORVASC [Concomitant]
     Active Substance: AMLODIPINE BESYLATE
  3. CHLORHEXIDINE GLUCONATE 0.12% ORAL RINSE WHICH IS GENERIC FOR PERIDEX [Suspect]
     Active Substance: CHLORHEXIDINE GLUCONATE
     Indication: BONE LOSS
     Dosage: 0.12% 1 PART (473 ML) BID + HS MOUTH
     Route: 048
  4. COQ10 [Concomitant]
     Active Substance: UBIDECARENONE
  5. VITAMIN B COMPLEX [Concomitant]
     Active Substance: CYANOCOBALAMIN\DEXPANTHENOL\NIACINAMIDE\PYRIDOXINE HYDROCHLORIDE\RIBOFLAVIN 5^-PHOSPHATE SODIUM\THIAMINE HYDROCHLORIDE\VITAMIN B COMPLEX

REACTIONS (4)
  - Cough [None]
  - Palpitations [None]
  - Secretion discharge [None]
  - Muscle spasms [None]
